FAERS Safety Report 21904110 (Version 1)
Quarter: 2023Q1

REPORT INFORMATION
  Report Type: Spontaneous
  Country: US (occurrence: None)
  Receive Date: 20230123
  Receipt Date: 20230123
  Transmission Date: 20230418
  Serious: No
  Sender: FDA-Public Use
  Company Number: None

PATIENT
  Age: 60 Year
  Sex: Female
  Weight: 46.36 kg

DRUGS (12)
  1. IBRANCE [Suspect]
     Active Substance: PALBOCICLIB
     Indication: Breast cancer female
     Dosage: OTHER FREQUENCY : 3W ON 1W OFF;?
     Route: 048
  2. CARAFATE [Concomitant]
  3. DRONABINOL [Concomitant]
  4. FASLODEX [Concomitant]
  5. FENTANYL-BUPIVACAINE [Concomitant]
  6. GABAPENTIN [Concomitant]
  7. NORCO [Concomitant]
  8. NAPROXEN [Concomitant]
  9. PROCHLORPERAZINE [Concomitant]
  10. REMERON SOLTAB [Concomitant]
  11. VITAMIN D3 [Concomitant]
  12. WOMENS MULTIVITAMIN [Concomitant]

REACTIONS (1)
  - Red blood cell count decreased [None]
